FAERS Safety Report 20505275 (Version 1)
Quarter: 2022Q1

REPORT INFORMATION
  Report Type: Spontaneous
  Country: US (occurrence: US)
  Receive Date: 20220223
  Receipt Date: 20220223
  Transmission Date: 20220423
  Serious: Yes (Other)
  Sender: FDA-Public Use
  Company Number: US-LUPIN PHARMACEUTICALS INC.-2022-02318

PATIENT
  Age: 68 Year
  Sex: Female

DRUGS (6)
  1. BETAMETHASONE DIPROPIONATE [Suspect]
     Active Substance: BETAMETHASONE DIPROPIONATE
     Indication: Morphoea
     Dosage: UNK, BID
     Route: 061
  2. CALCIPOTRIENE [Suspect]
     Active Substance: CALCIPOTRIENE
     Indication: Morphoea
     Dosage: UNK (OINTMENT )
     Route: 061
  3. TACROLIMUS [Suspect]
     Active Substance: TACROLIMUS
     Indication: Morphoea
     Dosage: UNK (OINTMENT )
     Route: 061
  4. TOFACITINIB [Concomitant]
     Active Substance: TOFACITINIB
     Indication: Morphoea
     Dosage: 5 MILLIGRAM, BID
     Route: 065
  5. APREMILAST [Concomitant]
     Active Substance: APREMILAST
     Indication: Morphoea
     Dosage: 30 MILLIGRAM, BID
     Route: 048
  6. METHOTREXATE [Concomitant]
     Active Substance: METHOTREXATE
     Indication: Morphoea
     Dosage: 5 TABLETS
     Route: 065

REACTIONS (2)
  - Drug ineffective [Unknown]
  - Off label use [Unknown]
